FAERS Safety Report 23085566 (Version 1)
Quarter: 2023Q4

REPORT INFORMATION
  Report Type: Report from Study
  Country: US (occurrence: US)
  Receive Date: 20231019
  Receipt Date: 20231019
  Transmission Date: 20240109
  Serious: Yes (Hospitalization, Other)
  Sender: FDA-Public Use
  Company Number: US-JAZZ-2022-US-010097

PATIENT
  Sex: Female

DRUGS (6)
  1. XYREM [Suspect]
     Active Substance: SODIUM OXYBATE
     Indication: Narcolepsy
     Dosage: 2.5 GRAM, BID
     Route: 048
     Dates: start: 202202, end: 202203
  2. XYREM [Suspect]
     Active Substance: SODIUM OXYBATE
     Indication: Cataplexy
     Dosage: 2.75 GRAM, BID
     Route: 048
     Dates: start: 202203
  3. XYREM [Suspect]
     Active Substance: SODIUM OXYBATE
     Indication: Somnolence
     Dosage: 2G AT BEDTIME AND 2.25G FOR THE SECOND DOSE
  4. XYREM [Suspect]
     Active Substance: SODIUM OXYBATE
     Dosage: 3.25 GRAM, BID
  5. XYREM [Suspect]
     Active Substance: SODIUM OXYBATE
     Dosage: 3.5 GRAM, BID
  6. VYVANSE [Concomitant]
     Active Substance: LISDEXAMFETAMINE DIMESYLATE
     Indication: Product used for unknown indication
     Dosage: UNK
     Dates: start: 20220216

REACTIONS (24)
  - Seizure [Unknown]
  - Hallucination [Unknown]
  - Limb discomfort [Recovering/Resolving]
  - Binge eating [Unknown]
  - Unevaluable event [Unknown]
  - Contusion [Unknown]
  - Feeling abnormal [Unknown]
  - Feeling drunk [Unknown]
  - Rash [Unknown]
  - Abdominal pain upper [Unknown]
  - Swelling [Unknown]
  - Dyspnoea [Unknown]
  - Panic attack [Unknown]
  - Nausea [Unknown]
  - Fall [Unknown]
  - Anxiety [Unknown]
  - Pain in extremity [Unknown]
  - Abnormal sleep-related event [Unknown]
  - Drug hypersensitivity [Unknown]
  - Sleep-related eating disorder [Unknown]
  - Infection [Unknown]
  - Product administration interrupted [Unknown]
  - Product prescribing issue [Unknown]
  - Intentional dose omission [Unknown]
